FAERS Safety Report 6128535-4 (Version None)
Quarter: 2009Q1

REPORT INFORMATION
  Report Type: 
  Country: None (occurrence: None)
  Receive Date: 20090323
  Receipt Date: 20090317
  Transmission Date: 20090719
  Serious: Yes (Hospitalization)
  Sender: FDA-Public Use
  Company Number: US-ASTRAZENECA-2009UW06989

PATIENT
  Age: 63 Year
  Sex: Female
  Weight: 168.9 kg

DRUGS (5)
  1. FASLODEX [Suspect]
     Indication: BREAST CANCER METASTATIC
     Route: 030
  2. ZOL446 [Suspect]
     Indication: METASTASES TO BONE
     Route: 042
     Dates: start: 20080408
  3. VITAMIN D [Concomitant]
  4. CALCIUM [Concomitant]
  5. COUMADIN [Concomitant]

REACTIONS (3)
  - CARDIAC MURMUR [None]
  - DEEP VEIN THROMBOSIS [None]
  - INJECTION SITE INFECTION [None]
